FAERS Safety Report 4700613-3 (Version None)
Quarter: 2005Q2

REPORT INFORMATION
  Report Type: 
  Country: None (occurrence: None)
  Receive Date: 20050627
  Receipt Date: 20050615
  Transmission Date: 20051028
  Serious: Yes (Other)
  Sender: FDA-Public Use
  Company Number: 2005090275

PATIENT
  Age: 55 Year
  Sex: Female
  Weight: 46 kg

DRUGS (1)
  1. DEPO-MEDROL [Suspect]
     Indication: ILL-DEFINED DISORDER
     Dosage: 40 MG (40 MG, 1 IN 1 D), INTRAMUSCULAR
     Route: 030

REACTIONS (3)
  - HYPERHIDROSIS [None]
  - HYPOTENSION [None]
  - SHOCK [None]
